FAERS Safety Report 12858179 (Version 1)
Quarter: 2016Q4

REPORT INFORMATION
  Report Type: Spontaneous
  Country: US (occurrence: US)
  Receive Date: 20161018
  Receipt Date: 20161018
  Transmission Date: 20170207
  Serious: No
  Sender: FDA-Public Use
  Company Number: US-SA-2016SA114534

PATIENT
  Sex: Female

DRUGS (1)
  1. LEMTRADA [Suspect]
     Active Substance: ALEMTUZUMAB
     Route: 041
     Dates: start: 20160511, end: 20160513

REACTIONS (9)
  - Pruritus [Unknown]
  - Headache [Unknown]
  - Chest discomfort [Unknown]
  - Thirst [Unknown]
  - Asthenia [Unknown]
  - Oropharyngeal pain [Unknown]
  - Tremor [Unknown]
  - Fatigue [Unknown]
  - Dry throat [Unknown]

NARRATIVE: CASE EVENT DATE: 201605
